FAERS Safety Report 6652572-4 (Version None)
Quarter: 2010Q1

REPORT INFORMATION
  Report Type: 
  Country: None (occurrence: None)
  Receive Date: 20100326
  Receipt Date: 20100318
  Transmission Date: 20100710
  Serious: Yes (Hospitalization)
  Sender: FDA-Public Use
  Company Number: US-ASTRAZENECA-2009UW17983

PATIENT
  Age: 15115 Day
  Sex: Male
  Weight: 149.7 kg

DRUGS (11)
  1. SEROQUEL [Suspect]
     Indication: DEPRESSION
     Route: 048
     Dates: start: 20060826
  2. ASPIRIN [Concomitant]
     Dosage: 81 MG  TABLET 2 TABLET DAILY
     Dates: start: 20060826
  3. LOTREL [Concomitant]
     Dosage: 10/20 TABLET DAILY
     Dates: start: 20060826
  4. TOPROL-XL [Concomitant]
     Dates: start: 20060826
  5. HYDROCHLOROTHIAZIDE [Concomitant]
     Dates: start: 20060826
  6. TRICOR [Concomitant]
     Dates: start: 20060826
  7. GLIMEPIRIDE [Concomitant]
     Dates: start: 20070424
  8. PIOGLITAZONE [Concomitant]
     Dates: start: 20070424
  9. LAMICTAL CD [Concomitant]
     Dates: start: 20070424
  10. LOPID [Concomitant]
     Dates: start: 20070424
  11. METOPROLOL [Concomitant]
     Dates: start: 20070424

REACTIONS (7)
  - ARTHRALGIA [None]
  - BLOOD CHOLESTEROL INCREASED [None]
  - DIABETES MELLITUS INADEQUATE CONTROL [None]
  - HYPERLIPIDAEMIA [None]
  - HYPEROSMOLAR STATE [None]
  - TYPE 2 DIABETES MELLITUS [None]
  - WEIGHT INCREASED [None]
